FAERS Safety Report 5166174-2 (Version None)
Quarter: 2006Q4

REPORT INFORMATION
  Report Type: 
  Country: None (occurrence: None)
  Receive Date: 20061129
  Receipt Date: 20061117
  Transmission Date: 20070319
  Serious: Yes (Hospitalization)
  Sender: FDA-Public Use
  Company Number: 2006143067

PATIENT
  Age: 69 Year
  Sex: Female
  Weight: 78 kg

DRUGS (8)
  1. ATORVASTATIN CALCIUM [Suspect]
     Indication: HYPERCHOLESTEROLAEMIA
     Dosage: 10 MG
     Dates: start: 20060405, end: 20060502
  2. PLACEBO (PLACEBO) [Suspect]
     Indication: HYPERCHOLESTEROLAEMIA
     Dates: start: 20060503, end: 20060518
  3. ZYPREXA [Concomitant]
  4. LITHIUM CARBONATE [Concomitant]
  5. VALPROIC ACID [Concomitant]
  6. ZYRTEC [Concomitant]
  7. ACTONEL [Concomitant]
  8. CALCIUM [Concomitant]

REACTIONS (20)
  - ALANINE AMINOTRANSFERASE INCREASED [None]
  - ASPARTATE AMINOTRANSFERASE INCREASED [None]
  - ATROPHY [None]
  - BENIGN NEOPLASM OF PINEAL GLAND [None]
  - BLOOD CREATINE PHOSPHOKINASE INCREASED [None]
  - CALCINOSIS [None]
  - CARDIOMEGALY [None]
  - CAROTID ARTERY STENOSIS [None]
  - CEREBRAL ATROPHY [None]
  - CORONARY ARTERY DISEASE [None]
  - DILATATION ATRIAL [None]
  - ELECTROCARDIOGRAM T WAVE INVERSION [None]
  - FALL [None]
  - INFLUENZA LIKE ILLNESS [None]
  - MASTOID DISORDER [None]
  - MITRAL VALVE INCOMPETENCE [None]
  - MYOCARDIAL INFARCTION [None]
  - MYOCARDIAL ISCHAEMIA [None]
  - PERICARDIAL EFFUSION [None]
  - PULMONARY ARTERY DILATATION [None]
